FAERS Safety Report 4393257-7 (Version None)
Quarter: 2004Q3

REPORT INFORMATION
  Report Type: 
  Country: None (occurrence: None)
  Receive Date: 20040701
  Receipt Date: 20040615
  Transmission Date: 20050211
  Serious: Yes (Other)
  Sender: FDA-Public Use
  Company Number: CA-2004-026099

PATIENT
  Age: 40 Year
  Sex: Female

DRUGS (5)
  1. BETASERON [Suspect]
     Indication: MULTIPLE SCLEROSIS RELAPSE
     Dosage: 8 MIU, EVERY 2D, SUBCUTANEOUS
     Route: 058
     Dates: start: 19991013
  2. CLONAZEPAM [Concomitant]
  3. MINESTRIN [Concomitant]
  4. DICLOFENAC SODIUM [Concomitant]
  5. ZYBAN [Concomitant]

REACTIONS (8)
  - DEMENTIA ALZHEIMER'S TYPE [None]
  - DEPRESSION [None]
  - DISTURBANCE IN ATTENTION [None]
  - IRRITABLE BOWEL SYNDROME [None]
  - MEMORY IMPAIRMENT [None]
  - RAYNAUD'S PHENOMENON [None]
  - STRESS SYMPTOMS [None]
  - SYSTEMIC LUPUS ERYTHEMATOSUS [None]
